FAERS Safety Report 6511943-7 (Version None)
Quarter: 2009Q4

REPORT INFORMATION
  Report Type: 
  Country: None (occurrence: None)
  Receive Date: 20091222
  Receipt Date: 20090617
  Transmission Date: 20100525
  Serious: No
  Sender: FDA-Public Use
  Company Number: US-ASTRAZENECA-2009UW15463

PATIENT
  Age: 880 Month
  Sex: Male
  Weight: 83.9 kg

DRUGS (7)
  1. CRESTOR [Suspect]
     Indication: BLOOD CHOLESTEROL
     Route: 048
     Dates: start: 20090601
  2. PLAVIX [Concomitant]
  3. LASIX [Concomitant]
  4. ASPIRIN [Concomitant]
  5. INSPIRA [Concomitant]
  6. NITROGLYCERIN [Concomitant]
  7. COREG [Concomitant]

REACTIONS (2)
  - INSOMNIA [None]
  - SLEEP DISORDER [None]
